FAERS Safety Report 6422850-2 (Version None)
Quarter: 2009Q4

REPORT INFORMATION
  Report Type: 
  Country: None (occurrence: None)
  Receive Date: 20091102
  Receipt Date: 20091027
  Transmission Date: 20100525
  Serious: Yes (Other)
  Sender: FDA-Public Use
  Company Number: US-ROCHE-635152

PATIENT
  Sex: Male

DRUGS (2)
  1. XELODA [Suspect]
     Indication: COLON CANCER
     Dosage: FORM: PILLS, 2 WEEKS ON AND THEN 1 WEEK OFF
     Route: 065
     Dates: start: 20061201
  2. AVASTIN [Suspect]
     Indication: COLON CANCER
     Route: 042
     Dates: start: 20070601

REACTIONS (1)
  - PRECANCEROUS SKIN LESION [None]
